FAERS Safety Report 9958513 (Version 4)
Quarter: 2014Q2

REPORT INFORMATION
  Report Type: Spontaneous
  Country: US (occurrence: US)
  Receive Date: 20140305
  Receipt Date: 20140403
  Transmission Date: 20141212
  Serious: Yes (Other)
  Sender: FDA-Public Use
  Company Number: US-AMGEN-USASP2014014008

PATIENT
  Age: 83 Year
  Sex: Female
  Weight: 58.05 kg

DRUGS (7)
  1. PROLIA [Suspect]
     Indication: OSTEOPOROSIS
     Dosage: 60
     Route: 058
     Dates: start: 20130211
  2. LOPRESSOR [Concomitant]
  3. NORVASC [Concomitant]
  4. SINGULAIR [Concomitant]
  5. ADVAIR [Concomitant]
  6. CALCIUM [Concomitant]
     Dosage: UNK UNK, QD
  7. VITAMIN D                          /00107901/ [Concomitant]
     Dosage: UNK UNK, QD

REACTIONS (5)
  - Tooth abscess [Recovered/Resolved]
  - Toothache [Unknown]
  - Gingival swelling [Unknown]
  - Arthralgia [Unknown]
  - Tooth infection [Unknown]
